FAERS Safety Report 8620140 (Version 2)
Quarter: 2013Q2

REPORT INFORMATION
  Report Type: Spontaneous
  Country: US (occurrence: US)
  Receive Date: 20120618
  Receipt Date: 20130408
  Transmission Date: 20140414
  Serious: Yes (Other)
  Sender: FDA-Public Use
  Company Number: US-ASTRAZENECA-2012SE38910

PATIENT
  Age: 51 Year
  Sex: Male

DRUGS (1)
  1. ATACAND [Suspect]
     Route: 048

REACTIONS (5)
  - Cardiac failure [Unknown]
  - Diabetes mellitus [Unknown]
  - Malaise [Unknown]
  - Dyspnoea [Unknown]
  - Venous thrombosis [Unknown]
